FAERS Safety Report 6163770-0 (Version None)
Quarter: 2009Q2

REPORT INFORMATION
  Report Type: 
  Country: None (occurrence: None)
  Receive Date: 20090422
  Receipt Date: 20090415
  Transmission Date: 20091009
  Serious: Yes (Other)
  Sender: FDA-Public Use
  Company Number: JP-JNJFOC-20090404535

PATIENT
  Sex: Male

DRUGS (7)
  1. TOPINA [Suspect]
     Indication: EPILEPSY
     Route: 048
  2. LEXIN [Concomitant]
     Indication: EPILEPSY
     Dosage: PER DAY
     Route: 048
  3. MYSTAN [Concomitant]
     Indication: EPILEPSY
     Route: 048
  4. GABAPEN [Concomitant]
     Indication: EPILEPSY
     Route: 048
  5. FERROMIA [Concomitant]
     Route: 048
  6. KAMAG G [Concomitant]
     Route: 048
  7. ADEROXAL [Concomitant]
     Dosage: PER DAY
     Route: 048

REACTIONS (3)
  - GRANULOCYTOPENIA [None]
  - RENAL DISORDER [None]
  - URINARY TRACT INFECTION [None]
